FAERS Safety Report 19510760 (Version 1)
Quarter: 2021Q3

REPORT INFORMATION
  Report Type: Spontaneous
  Country: US (occurrence: US)
  Receive Date: 20210709
  Receipt Date: 20210709
  Transmission Date: 20211014
  Serious: No
  Sender: FDA-Public Use
  Company Number: US-APOTEX-2020AP019917

PATIENT
  Age: 14 Year
  Sex: Male

DRUGS (1)
  1. ANASTROZOLE. [Suspect]
     Active Substance: ANASTROZOLE
     Indication: SHORT STATURE
     Dosage: UNK
     Route: 065
     Dates: start: 201905

REACTIONS (1)
  - Androgenetic alopecia [Unknown]

NARRATIVE: CASE EVENT DATE: 20200203
